FAERS Safety Report 4382404-9 (Version None)
Quarter: 2004Q2

REPORT INFORMATION
  Report Type: 
  Country: None (occurrence: None)
  Receive Date: 20040621
  Receipt Date: 20040611
  Transmission Date: 20050107
  Serious: Yes (Hospitalization)
  Sender: FDA-Public Use
  Company Number: A-CH2004-06574

PATIENT
  Age: 73 Year
  Sex: Male
  Weight: 65 kg

DRUGS (7)
  1. TRACLEER [Suspect]
     Indication: PULMONARY HYPERTENSION
     Dosage: SEE IMAGE
     Route: 048
     Dates: start: 20040302, end: 20040329
  2. OMEPRAZOLE [Concomitant]
  3. DOMEPERIDONE (DOMPERIDONE) [Concomitant]
  4. DIGOXIN [Concomitant]
  5. DICUMAROL (DICOUMAROL) [Concomitant]
  6. FUROSEMIDE [Concomitant]
  7. ALDACTONE [Concomitant]

REACTIONS (2)
  - PULMONARY THROMBOSIS [None]
  - THROMBOENDARTERECTOMY [None]
